FAERS Safety Report 17538832 (Version 1)
Quarter: 2020Q1

REPORT INFORMATION
  Report Type: Spontaneous
  Country: US (occurrence: US)
  Receive Date: 20200306
  Receipt Date: 20200306
  Transmission Date: 20200409
  Serious: Yes (Hospitalization)
  Sender: FDA-Public Use
  Company Number: None

PATIENT
  Sex: Female

DRUGS (10)
  1. VOTRIENT [Suspect]
     Active Substance: PAZOPANIB HYDROCHLORIDE
     Indication: RENAL CANCER
     Dosage: ?          OTHER FREQUENCY:EVERY MORNING ;?
     Route: 048
     Dates: start: 201802
  2. METAPROL [Concomitant]
  3. METOCLOPRAM [Concomitant]
     Active Substance: METOCLOPRAMIDE
  4. MAGNESIUM [Concomitant]
     Active Substance: MAGNESIUM
  5. ENOXAPARIN [Concomitant]
     Active Substance: ENOXAPARIN
  6. SCOPOLAINE DIS [Concomitant]
  7. VITAMIN D [Concomitant]
     Active Substance: VITAMIN D NOS
  8. AMOX/K CLAV [Concomitant]
     Active Substance: AMOXICILLIN\CLAVULANATE POTASSIUM
  9. OXYCODONE [Concomitant]
     Active Substance: OXYCODONE
  10. ONDANSETRON [Concomitant]
     Active Substance: ONDANSETRON

REACTIONS (2)
  - Therapy cessation [None]
  - Vomiting [None]
